FAERS Safety Report 8799136 (Version 1)
Quarter: 2012Q4

REPORT INFORMATION
  Report Type: 
  Country: US (occurrence: US)
  Receive Date: 20120920
  Receipt Date: 20120920
  Transmission Date: 20130627
  Serious: No
  Sender: FDA-Public Use
  Company Number: US-ASTRAZENECA-2012SE08195

PATIENT
  Sex: Female

DRUGS (2)
  1. ZESTRIL [Suspect]
     Indication: HYPERTENSION
     Route: 048
  2. ZESTRIL [Suspect]
     Indication: HYPERTENSION
     Dosage: THREE TO FOUR TABLETS A DAY
     Route: 048

REACTIONS (2)
  - Off label use [Unknown]
  - Drug effect decreased [Unknown]
